FAERS Safety Report 21272931 (Version 3)
Quarter: 2024Q3

REPORT INFORMATION
  Report Type: Spontaneous
  Country: FR (occurrence: FR)
  Receive Date: 20220831
  Receipt Date: 20240702
  Transmission Date: 20241017
  Serious: Yes (Other)
  Sender: CELLTRION
  Company Number: FR-CELLTRION INC.-2022FR013887

PATIENT

DRUGS (1)
  1. RITUXIMAB [Suspect]
     Active Substance: RITUXIMAB
     Indication: Cryoglobulinaemia
     Dosage: 375 MG/M2, QW (FOR FOUR WEEKS)
     Route: 042
     Dates: start: 202012

REACTIONS (7)
  - Cryoglobulinaemia [Recovered/Resolved]
  - Condition aggravated [Recovered/Resolved]
  - Myocarditis [Recovered/Resolved]
  - Disease progression [Recovered/Resolved]
  - Paradoxical drug reaction [Unknown]
  - Drug ineffective [Unknown]
  - Off label use [Unknown]
